FAERS Safety Report 8400875-5 (Version None)
Quarter: 2012Q2

REPORT INFORMATION
  Report Type: 
  Country: None (occurrence: None)
  Receive Date: 20120601
  Receipt Date: 20091008
  Transmission Date: 20120825
  Serious: Yes (Hospitalization, Other)
  Sender: FDA-Public Use
  Company Number: JP-BRISTOL-MYERS SQUIBB COMPANY-14389019

PATIENT
  Age: 59 Year
  Sex: Female
  Weight: 39 kg

DRUGS (22)
  1. ZYPREXA [Suspect]
     Indication: SCHIZOPHRENIA
     Dosage: FORMULATION - TABS
     Route: 048
     Dates: start: 20080101, end: 20080925
  2. TRICHLORMETHIAZIDE [Concomitant]
     Dosage: FORMULATION -TABLETS
     Dates: start: 20081118
  3. TEGRETOL [Concomitant]
     Dates: start: 20081118
  4. DAI-KENCHU-TO [Concomitant]
     Dates: start: 20090814
  5. NITRAZEPAM [Concomitant]
     Dates: end: 20081116
  6. DEPAS [Concomitant]
     Dates: start: 20081118, end: 20090404
  7. BROTIZOLAM [Concomitant]
     Dosage: FORM:TABLET
     Dates: start: 20081118
  8. COLONEL [Concomitant]
     Dates: end: 20081116
  9. MAGNESIUM OXIDE [Concomitant]
     Dates: end: 20081116
  10. SLOW-K [Concomitant]
     Dates: start: 20081118
  11. LORAZEPAM [Concomitant]
     Dates: start: 20090814
  12. PROMETHAZINE HCL [Concomitant]
  13. GASCON [Concomitant]
     Dates: end: 20081116
  14. PANTOSIN [Concomitant]
     Dates: start: 20090814
  15. ZOPICOOL [Concomitant]
     Dosage: FORMULATION -TABLET
  16. ABILIFY [Suspect]
     Indication: SCHIZOPHRENIA
     Dosage: 02SEP-05DEC08:12MG/QD;06DEC2008 DOSE INCREASED TO 24MG/DAY AND 17JAN2009 30MG/DAY
     Route: 048
     Dates: start: 20080902
  17. DIOVAN [Concomitant]
     Dosage: FORMULATION -TABLETS
     Dates: start: 20081118
  18. NORVASC [Concomitant]
     Dosage: FORMULATION -TABLET
  19. ALFACALCIDOL [Concomitant]
     Dosage: FORM:TABLET
     Dates: start: 20081118, end: 20090404
  20. RHUBARB + SALICYLIC ACID [Concomitant]
     Dosage: FORMULATION - POWDER
     Dates: end: 20081116
  21. SODIUM PICOSULFATE [Concomitant]
     Dosage: FORM:LIQUID
     Dates: end: 20081010
  22. DORAL [Concomitant]
     Dosage: FORM:TABLET
     Dates: start: 20090405

REACTIONS (5)
  - ILEUS [None]
  - HYPOKALAEMIA [None]
  - MEGACOLON [None]
  - HYPONATRAEMIA [None]
  - HAEMOGLOBIN DECREASED [None]
